FAERS Safety Report 20964523 (Version 1)
Quarter: 2022Q2

REPORT INFORMATION
  Report Type: Spontaneous
  Country: US (occurrence: US)
  Receive Date: 20220615
  Receipt Date: 20220615
  Transmission Date: 20220720
  Serious: No
  Sender: FDA-Public Use
  Company Number: US-Teikoku Pharma USA-TPU2022-00500

PATIENT
  Sex: Male
  Weight: 79.450 kg

DRUGS (1)
  1. LIDODERM [Suspect]
     Active Substance: LIDOCAINE
     Indication: Pain
     Route: 061

REACTIONS (2)
  - Product packaging difficult to open [Unknown]
  - Product storage error [Unknown]
